FAERS Safety Report 8062933-7 (Version None)
Quarter: 2012Q1

REPORT INFORMATION
  Report Type: 
  Country: None (occurrence: None)
  Receive Date: 20120123
  Receipt Date: 20120123
  Transmission Date: 20120608
  Serious: No
  Sender: FDA-Public Use
  Company Number: None

PATIENT
  Age: 30 Year
  Sex: Female
  Weight: 158.75 kg

DRUGS (1)
  1. TOPIRAMATE [Suspect]
     Indication: MIGRAINE PROPHYLAXIS
     Dosage: 25MG AT BED TIME
     Route: 048
     Dates: start: 20111231, end: 20111231

REACTIONS (6)
  - HEART RATE INCREASED [None]
  - MIGRAINE [None]
  - EPISTAXIS [None]
  - HEADACHE [None]
  - VOMITING [None]
  - BRAIN OEDEMA [None]
